FAERS Safety Report 4303355-1 (Version None)
Quarter: 2004Q1

REPORT INFORMATION
  Report Type: 
  Country: None (occurrence: None)
  Receive Date: 20040223
  Receipt Date: 20040209
  Transmission Date: 20041129
  Serious: Yes (Death, Hospitalization)
  Sender: FDA-Public Use
  Company Number: JP-JNJFOC-20031204892

PATIENT
  Age: 63 Year
  Sex: Male

DRUGS (12)
  1. FENTANYL [Suspect]
     Indication: CANCER PAIN
     Dosage: SEE IMAGE
     Route: 062
     Dates: start: 20030313, end: 20030315
  2. FENTANYL [Suspect]
     Indication: CANCER PAIN
     Dosage: SEE IMAGE
     Route: 062
     Dates: start: 20030315, end: 20030320
  3. HALOPERIDOL [Suspect]
     Indication: ANXIETY
     Dosage: 5 MG, IN 1 DAY, INTRAVENOUS
     Route: 041
     Dates: start: 20030319, end: 20030320
  4. CHLORPROMAZINE [Suspect]
     Indication: ANXIETY
     Dosage: 0.5 DOSE(S) 1 IN 1 DAY, INTRAVENOUS DRIP
     Route: 041
     Dates: start: 20030320, end: 20030320
  5. HYDROXYZINE HCL [Suspect]
     Indication: ANXIETY
     Dosage: 25 MG, 1 IN 1 DAY, INTRAVENOUS DRIP
     Route: 041
     Dates: start: 20030319, end: 20030319
  6. MORPHINE HYDROCHLORIDE (MORPHINE HYDROCHLORIDE) UNKNOWN [Suspect]
     Indication: POST PROCEDURAL PAIN
     Dosage: 200 MG, IN 1 DAY, EPIDURAL
     Route: 008
     Dates: start: 20030318
  7. MORPHINE HYDROCHLORIDE (MORPHINE HYDROCHLORIDE) UNKNOWN [Suspect]
     Dosage: RECTAL
     Route: 054
     Dates: start: 20030313, end: 20030320
  8. ROPIVACAINE (ROPIVACAINE) [Concomitant]
  9. FLOMOXEF SODIUM (FLOMOXEF SODIUM) [Concomitant]
  10. FULCALIQ (ALL OTHER THERAPEUTIC PRODUCTS) [Concomitant]
  11. PANTHENOL (PANTHENOL) [Concomitant]
  12. FLURBIPROFEN AXETIL (FLURBIPROFEN AXETIL) [Concomitant]

REACTIONS (17)
  - ANXIETY [None]
  - COLON CANCER [None]
  - CONDITION AGGRAVATED [None]
  - DEPRESSED LEVEL OF CONSCIOUSNESS [None]
  - DISORIENTATION [None]
  - DRUG LEVEL INCREASED [None]
  - HEPATIC FUNCTION ABNORMAL [None]
  - INSOMNIA [None]
  - INTESTINAL OBSTRUCTION [None]
  - MALIGNANT NEOPLASM PROGRESSION [None]
  - NARCOTIC INTOXICATION [None]
  - OXYGEN SATURATION DECREASED [None]
  - PAIN [None]
  - POST PROCEDURAL COMPLICATION [None]
  - PYREXIA [None]
  - RESPIRATORY DEPRESSION [None]
  - SOMNOLENCE [None]
